FAERS Safety Report 12690770 (Version 3)
Quarter: 2016Q3

REPORT INFORMATION
  Report Type: Spontaneous
  Country: IT (occurrence: IT)
  Receive Date: 20160826
  Receipt Date: 20160920
  Transmission Date: 20161109
  Serious: Yes (Hospitalization)
  Sender: FDA-Public Use
  Company Number: IT-TEVA-686553ACC

PATIENT
  Age: 76 Year
  Sex: Male

DRUGS (12)
  1. ALLOPURINOLO TEVA ITALIA - 300 MG COMPRESSE - TEVA ITALIA S.R.L . [Suspect]
     Active Substance: ALLOPURINOL
     Indication: HYPERURICAEMIA
     Dosage: 1 DOSAGE FORMS DAILY;
     Route: 048
     Dates: start: 20160725
  2. ZOLOFT -PFIZER ITALIA S.R.L. [Concomitant]
     Indication: PRODUCT USED FOR UNKNOWN INDICATION
  3. LASIX -SANOFI S.P.A [Concomitant]
     Indication: PRODUCT USED FOR UNKNOWN INDICATION
  4. EUTIROX -MERK SERONO S.P.A. [Concomitant]
     Indication: PRODUCT USED FOR UNKNOWN INDICATION
  5. PLAVIX -SANOFI PHARMA BRISTOL-MYERS SQUIBB SNC [Concomitant]
     Indication: PRODUCT USED FOR UNKNOWN INDICATION
  6. CALCITRIOL. [Concomitant]
     Active Substance: CALCITRIOL
     Indication: PRODUCT USED FOR UNKNOWN INDICATION
  7. NORVASC -PFIZER ITALIA S.R.L. [Concomitant]
     Indication: PRODUCT USED FOR UNKNOWN INDICATION
  8. LUVION -THERABEL GIENNE PHARMA S.P.A. [Concomitant]
     Indication: PRODUCT USED FOR UNKNOWN INDICATION
  9. BISOPROLOL HEMIFUMARATE [Concomitant]
     Active Substance: BISOPROLOL FUMARATE
     Indication: PRODUCT USED FOR UNKNOWN INDICATION
  10. ENAPREN -MERK SHARP E DOHME LIMITED [Concomitant]
     Indication: PRODUCT USED FOR UNKNOWN INDICATION
  11. DEURSIL -CHEPLAPHARM ARZNEIMITTEL GMBH [Concomitant]
     Indication: PRODUCT USED FOR UNKNOWN INDICATION
  12. PANTORC -TAKEDA ITALIA S.P.A. [Concomitant]
     Indication: PRODUCT USED FOR UNKNOWN INDICATION

REACTIONS (7)
  - Pruritus [Recovered/Resolved]
  - Lipase urine increased [None]
  - Lipase increased [Recovered/Resolved]
  - Skin exfoliation [Recovered/Resolved]
  - Eosinophil count increased [Recovered/Resolved]
  - Conjunctivitis [Recovered/Resolved]
  - Erythema [Recovered/Resolved]

NARRATIVE: CASE EVENT DATE: 20160801
